FAERS Safety Report 18590598 (Version 2)
Quarter: 2020Q4

REPORT INFORMATION
  Report Type: Spontaneous
  Country: JP (occurrence: JP)
  Receive Date: 20201208
  Receipt Date: 20201216
  Transmission Date: 20210114
  Serious: Yes (Hospitalization)
  Sender: FDA-Public Use
  Company Number: JP-ROCHE-2721283

PATIENT
  Age: 75 Year
  Sex: Male
  Weight: 40 kg

DRUGS (5)
  1. RANMARK [Concomitant]
     Active Substance: DENOSUMAB
     Dosage: DOSE INTERVAL UNCERTAINTY
     Route: 058
     Dates: start: 20181206, end: 20190926
  2. G-LASTA [Concomitant]
     Active Substance: PEGFILGRASTIM
     Dosage: DOSE INTERVAL UNCERTAINTY
     Route: 058
     Dates: start: 20190726, end: 20190928
  3. AVASTIN [Suspect]
     Active Substance: BEVACIZUMAB
     Indication: LUNG ADENOCARCINOMA
     Route: 041
     Dates: start: 20190719, end: 20190926
  4. ALIMTA [Concomitant]
     Active Substance: PEMETREXED DISODIUM
     Indication: LUNG ADENOCARCINOMA
     Route: 041
     Dates: start: 20190719, end: 20190823
  5. CARBOPLATIN. [Concomitant]
     Active Substance: CARBOPLATIN
     Indication: LUNG ADENOCARCINOMA
     Route: 041
     Dates: start: 20190719, end: 20190823

REACTIONS (2)
  - General physical health deterioration [Unknown]
  - Ileus [Recovered/Resolved]

NARRATIVE: CASE EVENT DATE: 20190902
